FAERS Safety Report 16346745 (Version 1)
Quarter: 2019Q2

REPORT INFORMATION
  Report Type: Report from Study
  Country: AU (occurrence: AU)
  Receive Date: 20190523
  Receipt Date: 20190523
  Transmission Date: 20190711
  Serious: Yes (Hospitalization, Other)
  Sender: FDA-Public Use
  Company Number: AU-REGENERON PHARMACEUTICALS, INC.-2019-31191

PATIENT

DRUGS (4)
  1. EYLEA [Suspect]
     Active Substance: AFLIBERCEPT
     Indication: DIABETIC RETINAL OEDEMA
     Dosage: UNK UNK, BOTH EYES
     Route: 031
     Dates: start: 2016
  2. POVIDONE-IODINE. [Suspect]
     Active Substance: POVIDONE-IODINE
     Indication: PRODUCT USED FOR UNKNOWN INDICATION
     Dosage: UNK
     Route: 061
  3. EYLEA [Suspect]
     Active Substance: AFLIBERCEPT
     Dosage: UNK UNK, Q6WK, BOTH EYES
     Route: 031
  4. ASPIRIN                            /00002701/ [Concomitant]
     Active Substance: ASPIRIN
     Indication: PRODUCT USED FOR UNKNOWN INDICATION

REACTIONS (10)
  - Intestinal obstruction [Recovering/Resolving]
  - Accident [Unknown]
  - Pneumonia [Recovering/Resolving]
  - Injection site erythema [Recovered/Resolved]
  - Blindness transient [Recovered/Resolved]
  - Ligament sprain [Recovering/Resolving]
  - Blood pressure abnormal [Recovering/Resolving]
  - Lower respiratory tract infection [Recovering/Resolving]
  - Myocardial infarction [Recovering/Resolving]
  - Adverse drug reaction [Recovered/Resolved]
